FAERS Safety Report 19442044 (Version 2)
Quarter: 2021Q3

REPORT INFORMATION
  Report Type: Spontaneous
  Country: US (occurrence: US)
  Receive Date: 20210621
  Receipt Date: 20210702
  Transmission Date: 20211014
  Serious: No
  Sender: FDA-Public Use
  Company Number: US-LUPIN PHARMACEUTICALS INC.-2021-09715

PATIENT
  Sex: Female
  Weight: 90.72 kg

DRUGS (8)
  1. PROBIOTIC [Concomitant]
     Active Substance: PROBIOTICS NOS
     Indication: GASTRIC DISORDER
     Dosage: 01 DOSAGE FORM, QD
     Route: 065
     Dates: start: 202104
  2. DIPHENHYDRAMINE. [Concomitant]
     Active Substance: DIPHENHYDRAMINE
     Indication: HYPERSENSITIVITY
     Dosage: 25 MILLIGRAM, QD, AS NEEDED
     Route: 065
     Dates: start: 202104
  3. COVID?19 VACCINE [Concomitant]
     Indication: PROPHYLAXIS
     Dosage: 1 GRAM, FIRST DOSE
     Route: 065
     Dates: start: 20210412
  4. COVID?19 VACCINE [Concomitant]
     Dosage: 1 GRAM, SECOND DOSE
     Route: 065
  5. WOMEN^S MULTI [Concomitant]
     Indication: PRODUCT USED FOR UNKNOWN INDICATION
     Dosage: 01 DOSAGE FORM, QD
     Route: 065
     Dates: start: 202104
  6. PRILOSEC [Concomitant]
     Active Substance: OMEPRAZOLE MAGNESIUM
     Indication: GASTROOESOPHAGEAL REFLUX DISEASE
     Dosage: 20 MILLIGRAM, QD
     Route: 065
     Dates: start: 202105
  7. TELMISARTAN AND AMLODIPINE TABLETS 40 MG/5 MG [Suspect]
     Active Substance: AMLODIPINE\TELMISARTAN
     Indication: HYPERTENSION
     Dosage: 01 DOSAGE FORM, QD
     Route: 065
     Dates: start: 2020
  8. MAGNESIUM [Concomitant]
     Active Substance: MAGNESIUM
     Indication: PRODUCT USED FOR UNKNOWN INDICATION
     Dosage: 250 MILLIGRAM, QD
     Route: 065
     Dates: start: 202105

REACTIONS (1)
  - Memory impairment [Unknown]
